FAERS Safety Report 20219059 (Version 1)
Quarter: 2021Q4

REPORT INFORMATION
  Report Type: Spontaneous
  Country: US (occurrence: None)
  Receive Date: 20211222
  Receipt Date: 20211222
  Transmission Date: 20220303
  Serious: No
  Sender: FDA-Public Use
  Company Number: None

PATIENT
  Age: 63 Year
  Sex: Female
  Weight: 68.04 kg

DRUGS (13)
  1. METOPROLOL [Suspect]
     Active Substance: METOPROLOL
     Indication: Ventricular tachycardia
     Dates: start: 20210818, end: 20210826
  2. ORENCIA [Concomitant]
     Active Substance: ABATACEPT
  3. PROLIA [Concomitant]
     Active Substance: DENOSUMAB
  4. METHOTREXATE [Concomitant]
     Active Substance: METHOTREXATE
  5. LISINOPRIL [Concomitant]
     Active Substance: LISINOPRIL
  6. NORVASC [Concomitant]
     Active Substance: AMLODIPINE BESYLATE
  7. CYMBALTA [Concomitant]
     Active Substance: DULOXETINE HYDROCHLORIDE
  8. PREDNISONE [Concomitant]
     Active Substance: PREDNISONE
  9. PRIMIDONE [Concomitant]
     Active Substance: PRIMIDONE
  10. ATORVASTATIN [Concomitant]
     Active Substance: ATORVASTATIN
  11. BIOTIN [Concomitant]
     Active Substance: BIOTIN
  12. CAL/MAG/ZINC [Concomitant]
  13. METFORMIN [Concomitant]
     Active Substance: METFORMIN HYDROCHLORIDE

REACTIONS (2)
  - Palpitations [None]
  - Nightmare [None]

NARRATIVE: CASE EVENT DATE: 20210820
